FAERS Safety Report 9798305 (Version 1)
Quarter: 2014Q1

REPORT INFORMATION
  Report Type: Spontaneous
  Country: US (occurrence: None)
  Receive Date: 20140103
  Receipt Date: 20140103
  Transmission Date: 20141002
  Serious: Yes (Disabling)
  Sender: FDA-Public Use
  Company Number: None

PATIENT
  Age: 51 Year
  Sex: Male
  Weight: 96.62 kg

DRUGS (1)
  1. DOXYCYCLINE [Suspect]
     Indication: URINARY TRACT INFECTION
     Dosage: 20 PILLS
     Dates: start: 20131223, end: 20131228

REACTIONS (3)
  - Dyspepsia [None]
  - Discomfort [None]
  - Abdominal pain [None]
